FAERS Safety Report 24205862 (Version 1)
Quarter: 2024Q3

REPORT INFORMATION
  Report Type: Spontaneous
  Country: US (occurrence: None)
  Receive Date: 20240813
  Receipt Date: 20240813
  Transmission Date: 20241016
  Serious: Yes (unspecified)
  Sender: Public
  Company Number: None

PATIENT
  Age: 60 Year
  Sex: Female

DRUGS (1)
  1. HUMIRA [Suspect]
     Active Substance: ADALIMUMAB
     Dosage: OTHER FREQUENCY : EVERY 2 WEEKS;?

REACTIONS (9)
  - Product use issue [None]
  - Product dose omission in error [None]
  - SARS-CoV-2 test positive [None]
  - Vomiting [None]
  - Lethargy [None]
  - Fatigue [None]
  - Respiratory tract congestion [None]
  - Therapy interrupted [None]
  - Arthralgia [None]

NARRATIVE: CASE EVENT DATE: 20240721
